FAERS Safety Report 8246635-X (Version None)
Quarter: 2012Q1

REPORT INFORMATION
  Report Type: 
  Country: None (occurrence: None)
  Receive Date: 20120330
  Receipt Date: 20120323
  Transmission Date: 20120608
  Serious: Yes (Other)
  Sender: FDA-Public Use
  Company Number: FR-PFIZER INC-2012075297

PATIENT
  Age: 51 Year
  Sex: Female

DRUGS (2)
  1. ACETAMINOPHEN AND CODEINE PHOSPHATE [Concomitant]
     Dosage: UNK
     Route: 048
     Dates: start: 20110706
  2. SULFASALAZINE [Suspect]
     Dosage: 500 MG FILM COATED GASTRO-RESISTANT TABLETS
     Route: 048
     Dates: start: 20110706, end: 20110826

REACTIONS (2)
  - PARAESTHESIA [None]
  - MOTOR DYSFUNCTION [None]
